FAERS Safety Report 16300236 (Version 1)
Quarter: 2019Q2

REPORT INFORMATION
  Report Type: Spontaneous
  Country: US (occurrence: US)
  Receive Date: 20190510
  Receipt Date: 20190510
  Transmission Date: 20190711
  Serious: Yes (Hospitalization)
  Sender: FDA-Public Use
  Company Number: US-APOTEX-2019AP013708

PATIENT
  Age: 18 Month
  Sex: Female

DRUGS (5)
  1. AMIKACIN. [Concomitant]
     Active Substance: AMIKACIN
     Indication: MYCOBACTERIUM ABSCESSUS INFECTION
     Dosage: UNK, TID
     Route: 065
  2. TIGECYCLINE FOR INJECTION [Suspect]
     Active Substance: TIGECYCLINE
     Dosage: UNK(1.2 MG/KG) Q.12H
     Route: 042
  3. AZITHROMYCIN ANHYDROUS. [Concomitant]
     Active Substance: AZITHROMYCIN ANHYDROUS
     Indication: MYCOBACTERIUM ABSCESSUS INFECTION
     Dosage: UNK, QD (10 MG/KG)
     Route: 048
  4. TIGECYCLINE FOR INJECTION [Suspect]
     Active Substance: TIGECYCLINE
     Indication: MYCOBACTERIUM ABSCESSUS INFECTION
     Dosage: UNK (2MG/KG)
     Route: 065
  5. IMIPENEM CILASTATIN                /00820501/ [Concomitant]
     Active Substance: CILASTATIN SODIUM\IMIPENEM
     Indication: MYCOBACTERIUM ABSCESSUS INFECTION
     Dosage: UNK,(25 MG/KG) Q.6H
     Route: 042

REACTIONS (1)
  - Adverse event [Unknown]
